FAERS Safety Report 19763328 (Version 1)
Quarter: 2021Q3

REPORT INFORMATION
  Report Type: Spontaneous
  Country: ES (occurrence: ES)
  Receive Date: 20210830
  Receipt Date: 20210830
  Transmission Date: 20211014
  Serious: Yes (Other)
  Sender: FDA-Public Use
  Company Number: ES-VERTEX PHARMACEUTICALS-2021-012987

PATIENT
  Age: 35 Year
  Sex: Male
  Weight: 76 kg

DRUGS (16)
  1. SPIRIVA RESPIMAT [Concomitant]
     Active Substance: TIOTROPIUM BROMIDE
     Dosage: 2.5MCG, SOLUTION FOR INHALATION
  2. CREON [Concomitant]
     Active Substance: PANCRELIPASE AMYLASE\PANCRELIPASE LIPASE\PANCRELIPASE PROTEASE
     Dosage: 25000 U, GASTRO?RESISTANT HARD CAPSULE
  3. SYMKEVI [Suspect]
     Active Substance: IVACAFTOR\TEZACAFTOR
     Indication: CYSTIC FIBROSIS
     Dosage: 1 DOSAGE FORM (100MG TEZACAFTOR/150MG IVACAFTOR), QD (1/24)
     Route: 048
     Dates: start: 20200214, end: 20210622
  4. KALYDECO [Suspect]
     Active Substance: IVACAFTOR
     Indication: CYSTIC FIBROSIS
     Dosage: 150 MILLIGRAM, QD (1/24)
     Route: 048
     Dates: start: 20200214, end: 20210622
  5. TOBRAMYCIN. [Concomitant]
     Active Substance: TOBRAMYCIN
     Dosage: UNK
     Route: 055
  6. SALBUTAMOL [Concomitant]
     Active Substance: ALBUTEROL
     Dosage: 100MCG, DOSE FOR PULMONARY INHALATION (POWDER)
  7. COLISTIN [Concomitant]
     Active Substance: COLISTIN
     Dosage: UNK
     Route: 055
  8. ALMAX [ALMAGATE] [Concomitant]
     Active Substance: ALMAGATE
     Dosage: UNK
  9. HIDROFEROL [Concomitant]
     Active Substance: CALCIFEDIOL
     Dosage: 0.266 MG, ORAL SOLUTION
     Route: 048
  10. SYMBICORT [Concomitant]
     Active Substance: BUDESONIDE\FORMOTEROL FUMARATE DIHYDRATE
     Dosage: 320MCG/9MCG, INHALATION POWDER FOR INHLATION, 1 INHALATION OF 60 DOSES
  11. OMEPRAZOLE. [Concomitant]
     Active Substance: OMEPRAZOLE
     Dosage: UNK
  12. ALOPURINOL [Concomitant]
     Active Substance: ALLOPURINOL
     Dosage: UNK
  13. URSOCHOL [Concomitant]
     Active Substance: URSODIOL
     Dosage: 150MG TABLETS, 60 TABLETS
  14. SEPTRIN [Concomitant]
     Active Substance: SULFAMETHOXAZOLE\TRIMETHOPRIM
     Dosage: 1 DOSAGE FORM (160MG/800MG), BID (1/12)
     Route: 048
     Dates: start: 20210622, end: 20210706
  15. ZITROMAX [Concomitant]
     Active Substance: AZITHROMYCIN
     Dosage: UNK
  16. HYANEB [Concomitant]
     Dosage: UNK

REACTIONS (2)
  - Hepatitis acute [Recovering/Resolving]
  - Hepatic steatosis [Unknown]

NARRATIVE: CASE EVENT DATE: 20210531
